FAERS Safety Report 21599409 (Version 1)
Quarter: 2022Q4

REPORT INFORMATION
  Report Type: Spontaneous
  Country: US (occurrence: US)
  Receive Date: 20221115
  Receipt Date: 20221115
  Transmission Date: 20230113
  Serious: No
  Sender: FDA-Public Use
  Company Number: US-PFIZER INC-202201290122

PATIENT
  Age: 20 Year
  Sex: Female
  Weight: 81.19 kg

DRUGS (4)
  1. DEPO-PROVERA [Suspect]
     Active Substance: MEDROXYPROGESTERONE ACETATE
     Indication: Contraception
     Dosage: 150 MG, EVERY 3 MONTHS (INTRAMUSCULARLY TO HIP EVERY 3 MONTHS)
     Route: 030
     Dates: start: 20220203
  2. DEPO-PROVERA [Suspect]
     Active Substance: MEDROXYPROGESTERONE ACETATE
     Indication: Menstrual cycle management
  3. DICYCLOMINE [Concomitant]
     Active Substance: DICYCLOMINE HYDROCHLORIDE
     Indication: Irritable bowel syndrome
     Dosage: UNK
  4. PHENTERMINE [Concomitant]
     Active Substance: PHENTERMINE
     Indication: Irritable bowel syndrome
     Dosage: UNK

REACTIONS (5)
  - Vulvovaginal candidiasis [Recovered/Resolved]
  - Disease recurrence [Recovered/Resolved]
  - Intermenstrual bleeding [Recovered/Resolved]
  - Pelvic discomfort [Not Recovered/Not Resolved]
  - Inappropriate schedule of product administration [Unknown]

NARRATIVE: CASE EVENT DATE: 20220228
